FAERS Safety Report 19886985 (Version 1)
Quarter: 2021Q3

REPORT INFORMATION
  Report Type: Spontaneous
  Country: US (occurrence: US)
  Receive Date: 20210928
  Receipt Date: 20210928
  Transmission Date: 20211014
  Serious: No
  Sender: FDA-Public Use
  Company Number: US-AIMMUNE THERAPEUTICS, INC.-2021AIMT00558

PATIENT

DRUGS (1)
  1. PALFORZIA [Suspect]
     Active Substance: PEANUT
     Indication: FOOD ALLERGY
     Dosage: UNKNOWN DOSE LEVEL
     Route: 065

REACTIONS (1)
  - Therapeutic response decreased [Unknown]

NARRATIVE: CASE EVENT DATE: 20210915
